FAERS Safety Report 23207858 (Version 1)
Quarter: 2023Q4

REPORT INFORMATION
  Report Type: Spontaneous
  Country: GB (occurrence: GB)
  Receive Date: 20231121
  Receipt Date: 20231121
  Transmission Date: 20240109
  Serious: Yes (Hospitalization)
  Sender: FDA-Public Use
  Company Number: None

PATIENT
  Age: 30 Year
  Sex: Male
  Weight: 135 kg

DRUGS (2)
  1. ISONIAZID\RIFAMPIN [Suspect]
     Active Substance: ISONIAZID\RIFAMPIN
     Indication: Latent tuberculosis
     Dosage: UNK
     Dates: start: 2022, end: 2022
  2. PYRIDOXINE [Concomitant]
     Active Substance: PYRIDOXINE
     Indication: Latent tuberculosis
     Dosage: UNK
     Dates: start: 2022, end: 2022

REACTIONS (1)
  - Bile acid malabsorption [Recovering/Resolving]

NARRATIVE: CASE EVENT DATE: 20220101
